FAERS Safety Report 15487739 (Version 1)
Quarter: 2018Q4

REPORT INFORMATION
  Report Type: Spontaneous
  Country: FR (occurrence: FR)
  Receive Date: 20181011
  Receipt Date: 20181011
  Transmission Date: 20190205
  Serious: Yes (Congenital Anomaly, Other)
  Sender: FDA-Public Use
  Company Number: FR-ASTRAZENECA-2018SF29603

PATIENT
  Age: 0 Day
  Sex: Female

DRUGS (1)
  1. XEROQUEL [Suspect]
     Active Substance: QUETIAPINE FUMARATE
     Indication: DEPRESSION
     Route: 064
     Dates: start: 20170630, end: 20170725

REACTIONS (1)
  - Anotia [Not Recovered/Not Resolved]

NARRATIVE: CASE EVENT DATE: 20180316
